FAERS Safety Report 4589268-9 (Version None)
Quarter: 2005Q1

REPORT INFORMATION
  Report Type: 
  Country: None (occurrence: None)
  Receive Date: 20050217
  Receipt Date: 20050217
  Transmission Date: 20050727
  Serious: Yes (Other)
  Sender: FDA-Public Use
  Company Number: None

PATIENT
  Age: 52 Year
  Sex: Female
  Weight: 108.8633 kg

DRUGS (1)
  1. ZICAM NASAL SPRAY SEVERE CONGESTION [Suspect]
     Dosage: ACCORDING TO DIRECTIONS
     Route: 045

REACTIONS (2)
  - AGEUSIA [None]
  - ANOSMIA [None]
